FAERS Safety Report 9913904 (Version 1)
Quarter: 2014Q1

REPORT INFORMATION
  Report Type: Spontaneous
  Country: US (occurrence: None)
  Receive Date: 20140219
  Receipt Date: 20140219
  Transmission Date: 20141002
  Serious: Yes (Hospitalization)
  Sender: FDA-Public Use
  Company Number: None

PATIENT
  Age: 62 Year
  Sex: Female
  Weight: 60.78 kg

DRUGS (1)
  1. AVAPRO [Suspect]
     Indication: HYPERTENSION
     Dosage: TAKEN BY MOUTH
     Route: 048
     Dates: start: 20130815, end: 20131004

REACTIONS (2)
  - Blood potassium abnormal [None]
  - Drug hypersensitivity [None]
